FAERS Safety Report 21633924 (Version 1)
Quarter: 2022Q4

REPORT INFORMATION
  Report Type: Spontaneous
  Country: US (occurrence: US)
  Receive Date: 20221123
  Receipt Date: 20221123
  Transmission Date: 20230112
  Serious: No
  Sender: FDA-Public Use
  Company Number: US-SA-SAC20221118001149

PATIENT
  Age: 73 Year
  Sex: Female

DRUGS (1)
  1. DUPIXENT [Suspect]
     Active Substance: DUPILUMAB
     Dosage: 300MG, OTHER
     Route: 058

REACTIONS (6)
  - Ocular hyperaemia [Unknown]
  - Erythema [Unknown]
  - Rash macular [Unknown]
  - Eye pruritus [Unknown]
  - Skin neoplasm excision [Unknown]
  - Dermal filler injection [Unknown]
